FAERS Safety Report 8958749 (Version 1)
Quarter: 2012Q4

REPORT INFORMATION
  Report Type: 
  Country: US (occurrence: US)
  Receive Date: 20121212
  Receipt Date: 20121212
  Transmission Date: 20130627
  Serious: Yes (Hospitalization)
  Sender: FDA-Public Use
  Company Number: US-ELI_LILLY_AND_COMPANY-US201212000755

PATIENT
  Age: 63 Year
  Sex: Male

DRUGS (21)
  1. EFFIENT [Suspect]
     Dosage: 10 mg, qd
     Dates: start: 20111006
  2. METOPROLOL [Concomitant]
     Dosage: 100 mg, qd
     Dates: start: 20070430
  3. SIMVASTATIN [Concomitant]
     Dosage: 40 mg, qd
     Dates: start: 20070430
  4. LASIX [Concomitant]
     Dosage: 40 mg, qd
     Dates: start: 20110228, end: 20120812
  5. LASIX [Concomitant]
     Dosage: 20 mg, qd
     Dates: start: 20120813
  6. QUINAPRIL [Concomitant]
     Dosage: 20 mg, qd
     Dates: start: 20091026
  7. DOXAZOSIN MESYLATE [Concomitant]
     Dosage: 4 mg, qd
     Dates: start: 20110906
  8. IMDUR [Concomitant]
     Dosage: 60 mg, qd
     Dates: start: 20110822
  9. RANEXA [Concomitant]
  10. POTASSIUM CHLORIDE [Concomitant]
     Dosage: 20 mEq, qd
     Dates: start: 20110228, end: 20120812
  11. POTASSIUM CHLORIDE [Concomitant]
     Dosage: 10 mEq, qd
     Dates: start: 20120813
  12. METFORMIN [Concomitant]
     Dosage: 2000 mg, qd
     Dates: start: 20070430
  13. CALCIUM [Concomitant]
  14. MAGNESIUM [Concomitant]
     Dosage: UNK
     Dates: start: 20070430
  15. ZINC [Concomitant]
     Dosage: UNK
     Dates: start: 20070430
  16. CINNAMON [Concomitant]
     Dosage: 500 mg, qd
     Dates: start: 20081124
  17. FISH OIL [Concomitant]
     Dosage: UNK
     Dates: start: 20070430
  18. VENTOLIN                           /00139501/ [Concomitant]
     Dosage: UNK
     Dates: start: 20091026
  19. ASPIRIN [Concomitant]
     Indication: CORONARY ARTERY DISEASE
     Dosage: 81 mg, qd
     Dates: start: 20091026
  20. COUMADIN [Concomitant]
  21. AMIODARONE [Concomitant]
     Dosage: 200 mg, qd
     Dates: start: 20120813, end: 20120829

REACTIONS (2)
  - Lower gastrointestinal haemorrhage [Recovered/Resolved]
  - Diverticulitis [Recovered/Resolved]
